FAERS Safety Report 6749866-0 (Version None)
Quarter: 2010Q2

REPORT INFORMATION
  Report Type: 
  Country: None (occurrence: None)
  Receive Date: 20100601
  Receipt Date: 20100527
  Transmission Date: 20101027
  Serious: Yes (Death, Hospitalization)
  Sender: FDA-Public Use
  Company Number: JP-BRISTOL-MYERS SQUIBB COMPANY-15110380

PATIENT
  Age: 71 Year
  Sex: Male
  Weight: 63 kg

DRUGS (13)
  1. TAXOL [Suspect]
     Indication: LUNG NEOPLASM MALIGNANT
     Route: 041
     Dates: start: 20090417
  2. CARBOPLATIN [Suspect]
     Indication: LUNG NEOPLASM MALIGNANT
     Route: 041
     Dates: start: 20090417
  3. LOXONIN [Concomitant]
     Indication: LUNG NEOPLASM MALIGNANT
     Dosage: FORM:TABS
     Route: 048
     Dates: start: 20081009, end: 20090607
  4. SELBEX [Concomitant]
     Dosage: FORM:CAPS
     Route: 048
     Dates: start: 20081009, end: 20090607
  5. MAGLAX [Concomitant]
     Indication: CONSTIPATION
     Dosage: FORM:TABS
     Route: 048
     Dates: start: 20081009, end: 20090607
  6. GASTER D [Concomitant]
     Dosage: FORM:TABS
     Route: 048
     Dates: start: 20081009, end: 20090607
  7. SOLANAX [Concomitant]
     Indication: ANXIETY DISORDER
     Dosage: FORM:TABS
     Route: 048
     Dates: start: 20081023, end: 20090607
  8. DEPAS [Concomitant]
     Indication: ANXIETY DISORDER
     Dosage: FORM:TABS
     Route: 048
     Dates: start: 20081113, end: 20090607
  9. MYSLEE [Concomitant]
     Indication: INSOMNIA
     Dosage: FORM:TABS
     Route: 048
     Dates: start: 20090410, end: 20090607
  10. SENNOSIDE A+B [Concomitant]
     Indication: CONSTIPATION
     Dosage: FORM:TABS
     Route: 048
     Dates: start: 20090406, end: 20090607
  11. CODEINE SULFATE [Concomitant]
     Indication: LUNG NEOPLASM MALIGNANT
     Dosage: FORM:TABS
     Route: 048
     Dates: start: 20090408, end: 20090602
  12. DEXART [Concomitant]
     Indication: LUNG NEOPLASM MALIGNANT
     Dosage: FORM:INJ
     Route: 041
     Dates: start: 20090417, end: 20090417
  13. GRANISETRON [Concomitant]
     Indication: LUNG NEOPLASM MALIGNANT
     Dosage: FORM:INJ
     Route: 041
     Dates: start: 20090417, end: 20090417

REACTIONS (4)
  - ASPIRATION [None]
  - CONDITION AGGRAVATED [None]
  - INTERSTITIAL LUNG DISEASE [None]
  - RESPIRATORY FAILURE [None]
